FAERS Safety Report 24966581 (Version 2)
Quarter: 2025Q4

REPORT INFORMATION
  Report Type: Spontaneous
  Country: US (occurrence: US)
  Receive Date: 20250213
  Receipt Date: 20251017
  Transmission Date: 20260117
  Serious: No
  Sender: PFIZER
  Company Number: US-PFIZER INC-202500033670

PATIENT
  Age: 80 Year
  Sex: Female
  Weight: 36.281 kg

DRUGS (3)
  1. IBRANCE [Suspect]
     Active Substance: PALBOCICLIB
     Indication: Breast cancer metastatic
     Dosage: 100 MG, CYCLIC, 21 DAYS, OFF FOR 5 DAYS
     Dates: start: 202205
  2. IBRANCE [Suspect]
     Active Substance: PALBOCICLIB
     Dosage: 100 MG, CYCLIC
  3. XGEVA [Concomitant]
     Active Substance: DENOSUMAB
     Indication: Bone disorder
     Dosage: 120 MG, EVERY 6 WEEKS

REACTIONS (5)
  - Skin lesion [Unknown]
  - Haemorrhage [Not Recovered/Not Resolved]
  - Diarrhoea [Not Recovered/Not Resolved]
  - Blood pressure increased [Unknown]
  - Off label use [Unknown]

NARRATIVE: CASE EVENT DATE: 20220501
